FAERS Safety Report 7119699-4 (Version None)
Quarter: 2010Q4

REPORT INFORMATION
  Report Type: 
  Country: None (occurrence: None)
  Receive Date: 20101123
  Receipt Date: 20101115
  Transmission Date: 20110411
  Serious: Yes (Hospitalization, Other)
  Sender: FDA-Public Use
  Company Number: US-ELI_LILLY_AND_COMPANY-US201011004412

PATIENT
  Age: 85 Year
  Sex: Male

DRUGS (4)
  1. HUMALOG [Suspect]
     Dosage: UNK, AS NEEDED
  2. HUMALOG [Suspect]
     Dosage: UNK, AS NEEDED
  3. LANTUS [Concomitant]
  4. SYNTHROID [Concomitant]

REACTIONS (23)
  - ABNORMAL BEHAVIOUR [None]
  - BACK PAIN [None]
  - BLINDNESS UNILATERAL [None]
  - BLOOD GLUCOSE INCREASED [None]
  - CATHETERISATION CARDIAC [None]
  - CHEST PAIN [None]
  - CORONARY ARTERY BYPASS [None]
  - DEAFNESS [None]
  - DRUG INEFFECTIVE [None]
  - EMERGENCY CARE [None]
  - EXPIRED DRUG ADMINISTERED [None]
  - EYE INFECTION [None]
  - EYE INJURY [None]
  - FALL [None]
  - GENERAL PHYSICAL HEALTH DETERIORATION [None]
  - HOSPITALISATION [None]
  - HYPOPHAGIA [None]
  - HYPOTENSION [None]
  - HYPOTHYROIDISM [None]
  - INCORRECT ROUTE OF DRUG ADMINISTRATION [None]
  - INTRAOCULAR PRESSURE INCREASED [None]
  - PRODUCT QUALITY ISSUE [None]
  - TREMOR [None]
